FAERS Safety Report 16119412 (Version 3)
Quarter: 2020Q3

REPORT INFORMATION
  Report Type: Spontaneous
  Country: FR (occurrence: FR)
  Receive Date: 20190326
  Receipt Date: 20200824
  Transmission Date: 20201102
  Serious: Yes (Hospitalization)
  Sender: FDA-Public Use
  Company Number: FR-BAUSCH-BL-2019-008845

PATIENT
  Age: 60 Year
  Sex: Male

DRUGS (5)
  1. VENLAFAXINE [Suspect]
     Active Substance: VENLAFAXINE HYDROCHLORIDE
     Route: 048
  2. VENLAFAXINE [Suspect]
     Active Substance: VENLAFAXINE HYDROCHLORIDE
     Indication: CENTRAL NERVOUS SYSTEM STIMULATION
     Route: 065
  3. BROMAZEPAM [Concomitant]
     Active Substance: BROMAZEPAM
     Indication: PRODUCT USED FOR UNKNOWN INDICATION
  4. METHADONE [Concomitant]
     Active Substance: METHADONE HYDROCHLORIDE
     Indication: PRODUCT USED FOR UNKNOWN INDICATION
  5. VENLAFAXINE [Suspect]
     Active Substance: VENLAFAXINE HYDROCHLORIDE
     Dosage: ABUSE WITH SUPRATHERAPEUTIC DOSE
     Route: 065

REACTIONS (10)
  - Rhabdomyolysis [Unknown]
  - Discomfort [Unknown]
  - Abdominal pain [Unknown]
  - Hypertension [Unknown]
  - Acute kidney injury [Unknown]
  - Hallucination [Unknown]
  - Confusional state [Unknown]
  - Overdose [Unknown]
  - Aggression [Unknown]
  - Drug abuse [Unknown]
